FAERS Safety Report 4406796-7 (Version None)
Quarter: 2004Q3

REPORT INFORMATION
  Report Type: 
  Country: None (occurrence: None)
  Receive Date: 20040715
  Receipt Date: 20040630
  Transmission Date: 20050211
  Serious: Yes (Death)
  Sender: FDA-Public Use
  Company Number: JP-JNJFOC-20040607182

PATIENT
  Age: 75 Year
  Sex: Male

DRUGS (11)
  1. LEUSTATIN [Suspect]
     Indication: MANTLE CELL LYMPHOMA
     Dosage: 5 MG, 1 IN 1 DAY, INTRAVENOUS
     Route: 042
     Dates: start: 20040607, end: 20040611
  2. CEFEPIME DIHYDROCHLORIDE (CEFAPIRIN) [Concomitant]
  3. FAMOTIDINE [Concomitant]
  4. METHOTREXATE [Concomitant]
  5. CYTARABINE [Concomitant]
  6. PREDISOLONE SODIUM SUCCINATE (PREDNISOLONE SODIUM SUCCINATE) [Concomitant]
  7. FILGRASTIM (FILGRASTIM) [Concomitant]
  8. PAZUFLOXACIN MESILATE (ALL OTHER THERAPEUTIC PRODUCTS) [Concomitant]
  9. VANCOMYCIN PREPARATIONS (VANCOMYCIN) [Concomitant]
  10. CONCENTRATED HUMAN RED BLOOD CELLS (HUMAN RED BLOOD CELLS) [Concomitant]
  11. CONCENTRATED HUMAN BLOOD PLATELET (PLATELETS, HUMAN BLOOD) [Concomitant]

REACTIONS (4)
  - HEPATOCELLULAR DAMAGE [None]
  - INFECTION [None]
  - NEPHROPATHY [None]
  - PANCYTOPENIA [None]
